FAERS Safety Report 25945301 (Version 2)
Quarter: 2025Q4

REPORT INFORMATION
  Report Type: Spontaneous
  Country: MX (occurrence: MX)
  Receive Date: 20251021
  Receipt Date: 20251124
  Transmission Date: 20260117
  Serious: Yes (Other)
  Sender: NOVO NORDISK
  Company Number: MX-NOVOPROD-1540201

PATIENT
  Age: 35 Year
  Sex: Female
  Weight: 67.9 kg

DRUGS (5)
  1. WEGOVY [Suspect]
     Active Substance: SEMAGLUTIDE
     Indication: Obesity
     Dosage: 0.25 MG, QW
     Route: 058
     Dates: start: 20251007, end: 20251007
  2. WEGOVY [Suspect]
     Active Substance: SEMAGLUTIDE
     Indication: Impaired fasting glucose
  3. WEGOVY [Suspect]
     Active Substance: SEMAGLUTIDE
     Indication: Insulin resistance
  4. LEVOTHYROXINE SODIUM [Concomitant]
     Active Substance: LEVOTHYROXINE SODIUM
     Indication: Primary hypothyroidism
     Dosage: 100 ?G
  5. FOLIC ACID [Concomitant]
     Active Substance: FOLIC ACID
     Dosage: UNK

REACTIONS (4)
  - Respiratory distress [Recovered/Resolved]
  - Face oedema [Recovered/Resolved]
  - Pharyngeal paraesthesia [Recovered/Resolved]
  - Periorbital oedema [Unknown]

NARRATIVE: CASE EVENT DATE: 20251007
